FAERS Safety Report 6379298-9 (Version None)
Quarter: 2009Q3

REPORT INFORMATION
  Report Type: 
  Country: None (occurrence: None)
  Receive Date: 20090923
  Receipt Date: 20090923
  Transmission Date: 20100115
  Serious: Yes (Life-Threatening, Hospitalization)
  Sender: FDA-Public Use
  Company Number: None

PATIENT
  Age: 73 Year
  Sex: Female
  Weight: 109 kg

DRUGS (7)
  1. ENOXAPARIN SODIUM [Suspect]
     Indication: PULMONARY EMBOLISM
     Dosage: 100MG SQ BID
  2. WARFARIN SODIUM [Suspect]
     Indication: PULMONARY EMBOLISM
     Dosage: 8 + 10 MG PO ON ALT DAYS
  3. PAXIL [Concomitant]
  4. NEXIUM [Concomitant]
  5. ALLEGRA [Concomitant]
  6. CELEBREX [Concomitant]
  7. CALCIUM [Concomitant]

REACTIONS (4)
  - ABDOMINAL DISTENSION [None]
  - ABDOMINAL PAIN [None]
  - RETROPERITONEAL HAEMORRHAGE [None]
  - THROMBOSIS [None]
